FAERS Safety Report 4860598-6 (Version None)
Quarter: 2005Q4

REPORT INFORMATION
  Report Type: 
  Country: None (occurrence: None)
  Receive Date: 20051219
  Receipt Date: 20051129
  Transmission Date: 20060501
  Serious: Yes (Hospitalization, Disabling, Other)
  Sender: FDA-Public Use
  Company Number: US-MERCK-0512USA00107

PATIENT
  Age: 57 Year
  Sex: Male
  Weight: 95 kg

DRUGS (1)
  1. VIOXX [Suspect]
     Indication: BACK PAIN
     Route: 048
     Dates: start: 20000101, end: 20030301

REACTIONS (20)
  - ARTERIOSCLEROSIS [None]
  - ARTERIOSCLEROSIS CORONARY ARTERY [None]
  - BACK INJURY [None]
  - CARDIAC DISORDER [None]
  - CAROTID ARTERY DISEASE [None]
  - CEREBROVASCULAR ACCIDENT [None]
  - COLONIC POLYP [None]
  - DEPRESSION [None]
  - DIABETES MELLITUS [None]
  - DIVERTICULUM [None]
  - GOITRE [None]
  - HEPATITIS C [None]
  - HYPERLIPIDAEMIA [None]
  - HYPERTENSION [None]
  - KAPOSI'S SARCOMA [None]
  - LACUNAR INFARCTION [None]
  - LEUKOENCEPHALOPATHY [None]
  - ONYCHOMYCOSIS [None]
  - SKIN PAPILLOMA [None]
  - TINEA PEDIS [None]
